FAERS Safety Report 8343241-3 (Version None)
Quarter: 2012Q2

REPORT INFORMATION
  Report Type: 
  Country: None (occurrence: None)
  Receive Date: 20120503
  Receipt Date: 20120503
  Transmission Date: 20120825
  Serious: Yes (Hospitalization)
  Sender: FDA-Public Use
  Company Number: None

PATIENT
  Sex: Male
  Weight: 80.79 kg

DRUGS (1)
  1. XELODA [Suspect]
     Indication: PANCREATIC CARCINOMA
     Dosage: 2000MG PO BID FOR 7 DAYS ON AND 7 DAYS OFF PO
     Route: 048
     Dates: start: 20120109

REACTIONS (3)
  - INTESTINAL OBSTRUCTION [None]
  - SKIN EXFOLIATION [None]
  - PALMAR-PLANTAR ERYTHRODYSAESTHESIA SYNDROME [None]
